FAERS Safety Report 5843519-9 (Version None)
Quarter: 2008Q3

REPORT INFORMATION
  Report Type: 
  Country: None (occurrence: None)
  Receive Date: 20080813
  Receipt Date: 20080801
  Transmission Date: 20090109
  Serious: Yes (Hospitalization)
  Sender: FDA-Public Use
  Company Number: US-ROCHE-579148

PATIENT
  Sex: Female

DRUGS (2)
  1. PEG-INTERFERON A-2A (RO 25-8310) [Suspect]
     Dosage: FORM: PRE-FILLED SYRINGE
     Route: 065
     Dates: start: 20080702, end: 20080723
  2. RIBAVIRIN [Suspect]
     Route: 065
     Dates: start: 20080702

REACTIONS (3)
  - BLOOD BILIRUBIN ABNORMAL [None]
  - FATIGUE [None]
  - SWELLING [None]
